FAERS Safety Report 21714856 (Version 1)
Quarter: 2022Q4

REPORT INFORMATION
  Report Type: Spontaneous
  Country: US (occurrence: None)
  Receive Date: 20221209
  Receipt Date: 20221209
  Transmission Date: 20230113
  Serious: Yes (Hospitalization)
  Sender: FDA-Public Use
  Company Number: None

PATIENT
  Age: 72 Year
  Sex: Male

DRUGS (1)
  1. ICATIBANT ACETATE [Suspect]
     Active Substance: ICATIBANT ACETATE
     Indication: Angioedema
     Dosage: OTHER STRENGTH : 30MG/3ML ;?FREQUENCY : AS NEEDED;?
     Route: 058
     Dates: start: 202207

REACTIONS (1)
  - Hip surgery [None]

NARRATIVE: CASE EVENT DATE: 20221123
